FAERS Safety Report 6661198-8 (Version None)
Quarter: 2010Q1

REPORT INFORMATION
  Report Type: 
  Country: None (occurrence: None)
  Receive Date: 20100331
  Receipt Date: 20100324
  Transmission Date: 20100710
  Serious: Yes (Life-Threatening, Hospitalization)
  Sender: FDA-Public Use
  Company Number: B0644367A

PATIENT
  Age: 64 Year
  Sex: Male

DRUGS (1)
  1. AVANDAMET [Suspect]
     Dosage: 1UNIT PER DAY
     Route: 048
     Dates: start: 20090701

REACTIONS (2)
  - ACUTE PULMONARY OEDEMA [None]
  - CARDIAC FAILURE [None]
